FAERS Safety Report 18168653 (Version 3)
Quarter: 2020Q3

REPORT INFORMATION
  Report Type: Spontaneous
  Country: US (occurrence: US)
  Receive Date: 20200819
  Receipt Date: 20200924
  Transmission Date: 20201103
  Serious: Yes (Other)
  Sender: FDA-Public Use
  Company Number: US-ROCHE-2659775

PATIENT
  Age: 60 Year
  Sex: Female
  Weight: 117.9 kg

DRUGS (6)
  1. ACTIVASE [Suspect]
     Active Substance: ALTEPLASE
     Dosage: INFUSION ;ONGOING: NO
     Route: 065
     Dates: start: 20200805
  2. ACTIVASE [Suspect]
     Active Substance: ALTEPLASE
     Route: 065
  3. NORMAL SALINE [Concomitant]
     Active Substance: SODIUM CHLORIDE
  4. NOREPINEPHRINE. [Concomitant]
     Active Substance: NOREPINEPHRINE
  5. ACTIVASE [Suspect]
     Active Substance: ALTEPLASE
     Indication: CEREBROVASCULAR ACCIDENT
     Dosage: ONGOING: NO
     Route: 065
     Dates: start: 20200805
  6. ACTIVASE [Suspect]
     Active Substance: ALTEPLASE
     Route: 065

REACTIONS (3)
  - SARS-CoV-2 antibody test positive [Unknown]
  - Product quality issue [Unknown]
  - Anaphylactic reaction [Recovered/Resolved]

NARRATIVE: CASE EVENT DATE: 20200805
